FAERS Safety Report 15770035 (Version 2)
Quarter: 2019Q1

REPORT INFORMATION
  Report Type: Spontaneous
  Country: IN (occurrence: IN)
  Receive Date: 20181228
  Receipt Date: 20190101
  Transmission Date: 20190417
  Serious: Yes (Other)
  Sender: FDA-Public Use
  Company Number: IN-TORRENT-00002068

PATIENT
  Age: 3 Month
  Sex: Male

DRUGS (13)
  1. ALLOPURINOL. [Concomitant]
     Active Substance: ALLOPURINOL
     Indication: HYPERURICAEMIA
     Dosage: UNKNOWN
  2. PHENYTOIN. [Concomitant]
     Active Substance: PHENYTOIN
     Indication: EARLY INFANTILE EPILEPTIC ENCEPHALOPATHY WITH BURST-SUPPRESSION
     Dosage: UNKNOWN
  3. PYRIDOXINE [Suspect]
     Active Substance: PYRIDOXINE
     Indication: EARLY INFANTILE EPILEPTIC ENCEPHALOPATHY WITH BURST-SUPPRESSION
     Dosage: UNKNOWN
  4. FOLINIC ACID [Concomitant]
     Active Substance: LEUCOVORIN
     Indication: EARLY INFANTILE EPILEPTIC ENCEPHALOPATHY WITH BURST-SUPPRESSION
     Dosage: UNKNOWN
  5. PYRIDOXAL PHOSPHATE [Concomitant]
     Active Substance: PYRIDOXAL PHOSPHATE
     Indication: EARLY INFANTILE EPILEPTIC ENCEPHALOPATHY WITH BURST-SUPPRESSION
     Dosage: UNKNOWN
  6. QUINIDINE [Concomitant]
     Active Substance: QUINIDINE
     Indication: EARLY INFANTILE EPILEPTIC ENCEPHALOPATHY WITH BURST-SUPPRESSION
     Dosage: UNKNOWN
  7. CLONAZEPAM. [Concomitant]
     Active Substance: CLONAZEPAM
     Indication: EARLY INFANTILE EPILEPTIC ENCEPHALOPATHY WITH BURST-SUPPRESSION
     Dosage: 0.15 MG/KG
  8. LEVETIRACETAM. [Concomitant]
     Active Substance: LEVETIRACETAM
     Indication: EARLY INFANTILE EPILEPTIC ENCEPHALOPATHY WITH BURST-SUPPRESSION
     Dosage: UNKNOWN
  9. VIGABATRIN. [Concomitant]
     Active Substance: VIGABATRIN
     Indication: EARLY INFANTILE EPILEPTIC ENCEPHALOPATHY WITH BURST-SUPPRESSION
     Dosage: UNKNOWN
  10. TOPIRAMATE. [Suspect]
     Active Substance: TOPIRAMATE
     Indication: EARLY INFANTILE EPILEPTIC ENCEPHALOPATHY WITH BURST-SUPPRESSION
     Dosage: INITIATED AT AGE OF 1 MONTH
  11. VALPROIC ACID. [Suspect]
     Active Substance: VALPROIC ACID
     Indication: EARLY INFANTILE EPILEPTIC ENCEPHALOPATHY WITH BURST-SUPPRESSION
     Dosage: INITIATED AT AGE OF 1 MONTH
  12. PHENOBARBITONE [Concomitant]
     Active Substance: PHENOBARBITAL
     Indication: EARLY INFANTILE EPILEPTIC ENCEPHALOPATHY WITH BURST-SUPPRESSION
     Dosage: UNKNOWN
  13. ZONISAMIDE. [Concomitant]
     Active Substance: ZONISAMIDE
     Indication: EARLY INFANTILE EPILEPTIC ENCEPHALOPATHY WITH BURST-SUPPRESSION
     Dosage: UNKNOWN

REACTIONS (2)
  - Drug ineffective for unapproved indication [Unknown]
  - Hyperammonaemia [Recovered/Resolved]
